FAERS Safety Report 9586266 (Version 2)
Quarter: 2013Q4

REPORT INFORMATION
  Report Type: Spontaneous
  Country: US (occurrence: None)
  Receive Date: 20131001
  Receipt Date: 20131023
  Transmission Date: 20140711
  Serious: No
  Sender: FDA-Public Use
  Company Number: NXG-13-012

PATIENT
  Sex: Female

DRUGS (1)
  1. FIORICET [Suspect]
     Indication: MIGRAINE
     Dosage: .

REACTIONS (5)
  - Product odour abnormal [None]
  - Gingival pain [None]
  - Stomatitis [None]
  - Drug ineffective [None]
  - Product tampering [None]
